FAERS Safety Report 17925992 (Version 2)
Quarter: 2020Q3

REPORT INFORMATION
  Report Type: Report from Study
  Country: FI (occurrence: FI)
  Receive Date: 20200622
  Receipt Date: 20200709
  Transmission Date: 20201103
  Serious: Yes (Other)
  Sender: FDA-Public Use
  Company Number: FI-MYLANLABS-2020M1057195

PATIENT
  Age: 70 Year
  Sex: Female

DRUGS (3)
  1. LEPONEX [Suspect]
     Active Substance: CLOZAPINE
     Indication: SCHIZOAFFECTIVE DISORDER
     Dosage: 75 MILLIGRAM, QD
     Dates: start: 20200520, end: 202006
  2. LEPONEX [Suspect]
     Active Substance: CLOZAPINE
     Dosage: 125 MILLIGRAM, QD
     Dates: start: 202006
  3. LEPONEX [Suspect]
     Active Substance: CLOZAPINE
     Dosage: 100 MILLIGRAM, QD
     Dates: start: 202006, end: 202006

REACTIONS (2)
  - Lymphocyte count decreased [Not Recovered/Not Resolved]
  - Off label use [Unknown]

NARRATIVE: CASE EVENT DATE: 20200520
